FAERS Safety Report 9085405 (Version 1)
Quarter: 2013Q1

REPORT INFORMATION
  Report Type: Spontaneous
  Country: US (occurrence: US)
  Receive Date: 20130130
  Receipt Date: 20130130
  Transmission Date: 20140127
  Serious: Yes (Other)
  Sender: FDA-Public Use
  Company Number: US-009507513-1301USA005811

PATIENT
  Age: 62 Year
  Sex: Male

DRUGS (1)
  1. VIOXX [Suspect]
     Indication: INFLAMMATION
     Dosage: UNK
     Route: 048
     Dates: start: 2002, end: 2002

REACTIONS (2)
  - Myocardial infarction [Unknown]
  - Coronary artery disease [Unknown]
